FAERS Safety Report 5259509-3 (Version None)
Quarter: 2007Q1

REPORT INFORMATION
  Report Type: 
  Country: None (occurrence: None)
  Receive Date: 20061218
  Receipt Date: 20060127
  Transmission Date: 20070707
  Serious: Yes (Other)
  Sender: FDA-Public Use
  Company Number: 434230

PATIENT

DRUGS (2)
  1. TICLID [Suspect]
     Indication: THROMBOSIS IN DEVICE
     Dosage: ORAL
     Route: 048
  2. TICLID [Suspect]
     Indication: THROMBOSIS PROPHYLAXIS
     Dosage: ORAL
     Route: 048

REACTIONS (2)
  - HEPATIC FAILURE [None]
  - JAUNDICE [None]
